FAERS Safety Report 9197055 (Version 1)
Quarter: 2013Q1

REPORT INFORMATION
  Report Type: Spontaneous
  Country: US (occurrence: None)
  Receive Date: 20120709
  Receipt Date: 20120709
  Transmission Date: 20140127
  Serious: Yes (Other)
  Sender: FDA-Public Use
  Company Number: PHEH2012US002826

PATIENT
  Age: 59 Year
  Sex: Female

DRUGS (1)
  1. GLEEVEC [Suspect]
     Dosage: , ORAL

REACTIONS (1)
  - Pancytopenia [None]
